FAERS Safety Report 4714149-7 (Version None)
Quarter: 2005Q3

REPORT INFORMATION
  Report Type: 
  Country: None (occurrence: None)
  Receive Date: 20050701
  Receipt Date: 20041116
  Transmission Date: 20060218
  Serious: Yes (Hospitalization, Other)
  Sender: FDA-Public Use
  Company Number: 2004066830

PATIENT
  Age: 14 Year
  Sex: Female
  Weight: 56.6996 kg

DRUGS (6)
  1. ZOLOFT [Suspect]
     Indication: ANXIETY
     Dosage: 25 MG (25 MG, 1 IN 1 D), ORAL
     Route: 048
     Dates: end: 20040520
  2. ZOLOFT [Suspect]
     Indication: DEPRESSION
     Dosage: 25 MG (25 MG, 1 IN 1 D), ORAL
     Route: 048
     Dates: end: 20040520
  3. DIPHENHYDRAMINE HCL [Suspect]
     Indication: SLEEP DISORDER
     Dates: start: 20040101
  4. ZALEPLON [Suspect]
     Indication: SLEEP DISORDER
     Dates: start: 20040501
  5. ACETAMINOPHEN [Suspect]
     Indication: ILL-DEFINED DISORDER
  6. TRAZODONE (TRAZODONE) [Concomitant]

REACTIONS (5)
  - AGGRESSION [None]
  - DRUG INEFFECTIVE [None]
  - INSOMNIA [None]
  - INTENTIONAL MISUSE [None]
  - SUICIDE ATTEMPT [None]
